FAERS Safety Report 25031933 (Version 3)
Quarter: 2025Q2

REPORT INFORMATION
  Report Type: Spontaneous
  Country: JP (occurrence: JP)
  Receive Date: 20250303
  Receipt Date: 20250630
  Transmission Date: 20250717
  Serious: Yes (Hospitalization)
  Sender: LABORATOIRES SERB
  Company Number: JP-SERB S.A.S.-2172107

PATIENT
  Age: 52 Year
  Sex: Female

DRUGS (8)
  1. GLUCARPIDASE [Suspect]
     Active Substance: GLUCARPIDASE
     Indication: Toxicity to various agents
     Dates: start: 20250118, end: 20250118
  2. METHOTREXATE [Suspect]
     Active Substance: METHOTREXATE
     Dates: start: 20250116
  3. ACYCLOVIR [Suspect]
     Active Substance: ACYCLOVIR
     Dates: start: 20250203
  4. ACETAZOLAMIDE [Concomitant]
     Active Substance: ACETAZOLAMIDE
  5. SODIUM BICARBONATE [Concomitant]
     Active Substance: SODIUM BICARBONATE
  6. LEVOLEUCOVORIN CALCIUM [Concomitant]
     Active Substance: LEVOLEUCOVORIN CALCIUM
     Dates: start: 20250122, end: 20250122
  7. LEVOLEUCOVORIN CALCIUM [Concomitant]
     Active Substance: LEVOLEUCOVORIN CALCIUM
     Dates: start: 20250118, end: 20250118
  8. LEVOLEUCOVORIN CALCIUM [Concomitant]
     Active Substance: LEVOLEUCOVORIN CALCIUM
     Dates: start: 20250117, end: 20250117

REACTIONS (3)
  - Cytopenia [Unknown]
  - Liver disorder [Recovered/Resolved]
  - Rash [Unknown]

NARRATIVE: CASE EVENT DATE: 20250101
